FAERS Safety Report 13089290 (Version 1)
Quarter: 2017Q1

REPORT INFORMATION
  Report Type: Report from Study
  Country: ES (occurrence: ES)
  Receive Date: 20170105
  Receipt Date: 20170105
  Transmission Date: 20170428
  Serious: Yes (Hospitalization, Other)
  Sender: FDA-Public Use
  Company Number: ES-TEVA-725745ISR

PATIENT
  Age: 47 Year
  Sex: Male

DRUGS (3)
  1. DIPYRONE [Suspect]
     Active Substance: DIPYRONE
     Indication: LIMB INJURY
     Route: 065
  2. PIPERACILLIN AND TAZOBACTAM [Suspect]
     Active Substance: PIPERACILLIN SODIUM\TAZOBACTAM SODIUM
     Indication: SOFT TISSUE INFECTION
     Dosage: 3 DOSAGE FORMS DAILY; 4G/500MG EVERY 8 HOURS
     Route: 065
  3. GABAPENTIN. [Suspect]
     Active Substance: GABAPENTIN
     Route: 065

REACTIONS (1)
  - Agranulocytosis [Recovered/Resolved]
